FAERS Safety Report 4530945-3 (Version None)
Quarter: 2004Q4

REPORT INFORMATION
  Report Type: 
  Country: None (occurrence: None)
  Receive Date: 20041215
  Receipt Date: 20041130
  Transmission Date: 20050328
  Serious: Yes (Hospitalization)
  Sender: FDA-Public Use
  Company Number: 2004-01907

PATIENT
  Age: 83 Year
  Sex: Male

DRUGS (4)
  1. IMMUCYST (BCG - IT (CONNAUGHT)), AVENTIS PASTEUR LTD. [Suspect]
     Indication: BLADDER CANCER
     Dosage: 81 MG (81.0 MG)
     Route: 043
     Dates: start: 20040323, end: 20040504
  2. BROTIZOLAM [Concomitant]
  3. EVIPROSTAT [Concomitant]
  4. NAFTOPIDIL [Concomitant]

REACTIONS (4)
  - BOVINE TUBERCULOSIS [None]
  - HEPATIC FUNCTION ABNORMAL [None]
  - MALAISE [None]
  - METASTASES TO LIVER [None]
